FAERS Safety Report 9105582 (Version 1)
Quarter: 2013Q1

REPORT INFORMATION
  Report Type: Report from Study
  Country: US (occurrence: US)
  Receive Date: 20130220
  Receipt Date: 20130220
  Transmission Date: 20140127
  Serious: Yes (Other)
  Sender: FDA-Public Use
  Company Number: US-009507513-1302USA008618

PATIENT
  Age: 64 Year
  Sex: Female
  Weight: 55.78 kg

DRUGS (2)
  1. SIMVASTATIN [Suspect]
     Indication: BLOOD CHOLESTEROL
     Dosage: 25 MG, UNK
  2. SIMVASTATIN [Suspect]
     Dosage: 50 MG, UNK
     Dates: start: 20120906

REACTIONS (1)
  - Pruritus [Unknown]
